FAERS Safety Report 11717588 (Version 3)
Quarter: 2016Q1

REPORT INFORMATION
  Report Type: Spontaneous
  Country: US (occurrence: US)
  Receive Date: 20151110
  Receipt Date: 20160217
  Transmission Date: 20160525
  Serious: Yes (Death)
  Sender: FDA-Public Use
  Company Number: US-BEH-2015055433

PATIENT
  Sex: Female
  Weight: 65 kg

DRUGS (13)
  1. EPIPEN [Concomitant]
     Active Substance: EPINEPHRINE
  2. LMX [Concomitant]
     Active Substance: LIDOCAINE
  3. LACTULOSE. [Concomitant]
     Active Substance: LACTULOSE
  4. HIZENTRA [Suspect]
     Active Substance: HUMAN IMMUNOGLOBULIN G
     Indication: PRODUCT USED FOR UNKNOWN INDICATION
     Dosage: 2 GM 10 ML VIAL
     Route: 058
     Dates: end: 20151019
  5. DIPHENHYDRAMINE. [Concomitant]
     Active Substance: DIPHENHYDRAMINE
  6. FUROSEMIDE. [Concomitant]
     Active Substance: FUROSEMIDE
  7. CELEBREX [Concomitant]
     Active Substance: CELECOXIB
  8. VITAMIN D [Concomitant]
     Active Substance: CHOLECALCIFEROL
  9. MIDODRINE [Concomitant]
     Active Substance: MIDODRINE
  10. XIFAXAN [Concomitant]
     Active Substance: RIFAXIMIN
  11. SINGULAIR [Concomitant]
     Active Substance: MONTELUKAST SODIUM
  12. SPIRONOLACTONE. [Concomitant]
     Active Substance: SPIRONOLACTONE
  13. TOPAMAX [Concomitant]
     Active Substance: TOPIRAMATE

REACTIONS (4)
  - Respiratory failure [Fatal]
  - Immunodeficiency common variable [Fatal]
  - Hepatic cirrhosis [Fatal]
  - Escherichia sepsis [Fatal]
